FAERS Safety Report 7140307-0 (Version None)
Quarter: 2010Q4

REPORT INFORMATION
  Report Type: 
  Country: None (occurrence: None)
  Receive Date: 20101207
  Receipt Date: 20101122
  Transmission Date: 20110411
  Serious: Yes (Hospitalization, Other)
  Sender: FDA-Public Use
  Company Number: US-BIOGENIDEC-2009BI025227

PATIENT
  Age: 31 Year
  Sex: Female

DRUGS (8)
  1. TYSABRI [Suspect]
     Indication: MULTIPLE SCLEROSIS
     Route: 042
     Dates: start: 20090413, end: 20090518
  2. CYMBALTA [Concomitant]
     Indication: MYALGIA
     Route: 048
     Dates: start: 20060101
  3. VICODIN [Concomitant]
     Dates: start: 20080101
  4. TESSALON [Concomitant]
  5. TUSSIONEX [Concomitant]
  6. CODEINE [Concomitant]
  7. VITAMIN D [Concomitant]
  8. IRON [Concomitant]

REACTIONS (3)
  - COOMBS POSITIVE HAEMOLYTIC ANAEMIA [None]
  - IDIOPATHIC THROMBOCYTOPENIC PURPURA [None]
  - INTERSTITIAL LUNG DISEASE [None]
